FAERS Safety Report 8948261 (Version 1)
Quarter: 2012Q4

REPORT INFORMATION
  Report Type: 
  Country: FI (occurrence: FI)
  Receive Date: 20121206
  Receipt Date: 20121206
  Transmission Date: 20130627
  Serious: Yes (Other)
  Sender: FDA-Public Use
  Company Number: PHHY2012FI111394

PATIENT
  Age: 62 Year
  Sex: Female

DRUGS (2)
  1. LEPONEX [Suspect]
     Indication: SCHIZOPHRENIA
     Dosage: 200 mg a day
     Dates: end: 201211
  2. LEPONEX [Suspect]
     Dosage: UNK (using bigger dose)

REACTIONS (4)
  - Balance disorder [Unknown]
  - Delirium [Unknown]
  - Gastroenteritis [Unknown]
  - Diarrhoea [Unknown]
